FAERS Safety Report 4724661-2 (Version None)
Quarter: 2005Q3

REPORT INFORMATION
  Report Type: 
  Country: None (occurrence: None)
  Receive Date: 20050719
  Receipt Date: 20050719
  Transmission Date: 20060218
  Serious: Yes (Hospitalization)
  Sender: FDA-Public Use
  Company Number: None

PATIENT
  Age: 64 Year
  Sex: Male
  Weight: 92.9874 kg

DRUGS (4)
  1. BEVACIZUMAB [Suspect]
     Indication: COLON CANCER
     Dosage: 465.90 MG INTRAVENOUS
     Route: 042
     Dates: start: 20050512, end: 20050512
  2. IRINOTECAN [Suspect]
     Indication: COLON CANCER
     Dosage: 327.00 MG  INTRAVENOUS
     Route: 042
     Dates: start: 20050512, end: 20050512
  3. LEUCOVORIN [Concomitant]
  4. FLUOROURACIL [Concomitant]

REACTIONS (4)
  - ENTEROCOCCAL INFECTION [None]
  - FATIGUE [None]
  - MENTAL STATUS CHANGES [None]
  - URINARY TRACT INFECTION [None]
